FAERS Safety Report 5356394-6 (Version None)
Quarter: 2007Q2

REPORT INFORMATION
  Report Type: 
  Country: None (occurrence: None)
  Receive Date: 20070530
  Receipt Date: 20061206
  Transmission Date: 20071010
  Serious: Yes (Other)
  Sender: FDA-Public Use
  Company Number: US200609006052

PATIENT
  Age: 43 Year
  Sex: Female
  Weight: 70.3 kg

DRUGS (4)
  1. ZYPREXA [Suspect]
     Dosage: 7.5 MG, 2/D
     Dates: start: 20030101
  2. RISPERDAL                                  /SWE/ (RISPERIDONE) [Concomitant]
  3. ZOLOFT [Concomitant]
  4. DEPAKOTE [Concomitant]

REACTIONS (5)
  - DIABETES MELLITUS [None]
  - HYPERTENSION [None]
  - METABOLIC DISORDER [None]
  - OBESITY [None]
  - PANCREATITIS [None]
